FAERS Safety Report 18517756 (Version 2)
Quarter: 2020Q4

REPORT INFORMATION
  Report Type: Spontaneous
  Country: US (occurrence: US)
  Receive Date: 20201118
  Receipt Date: 20201216
  Transmission Date: 20210114
  Serious: Yes (Other)
  Sender: FDA-Public Use
  Company Number: US-PFIZER INC-2020450105

PATIENT
  Age: 65 Year
  Sex: Female
  Weight: 77.11 kg

DRUGS (3)
  1. GABAPENTIN. [Suspect]
     Active Substance: GABAPENTIN
     Dosage: UNK
  2. VOLTAREN [DICLOFENAC] [Concomitant]
     Active Substance: DICLOFENAC SODIUM
     Dosage: UNK
  3. GABAPENTIN. [Suspect]
     Active Substance: GABAPENTIN
     Dosage: 2400 MG, DAILY

REACTIONS (5)
  - Drug ineffective [Unknown]
  - Prescribed overdose [Unknown]
  - Fibromyalgia [Unknown]
  - Complex regional pain syndrome [Unknown]
  - Neurological procedural complication [Unknown]
